FAERS Safety Report 8660332 (Version 4)
Quarter: 2012Q4

REPORT INFORMATION
  Report Type: Report from Study
  Country: PR (occurrence: PR)
  Receive Date: 20120711
  Receipt Date: 20121005
  Transmission Date: 20130627
  Serious: Yes (Hospitalization, Other)
  Sender: FDA-Public Use
  Company Number: PR-ABBOTT-12P-131-0953307-00

PATIENT
  Age: 62 None
  Sex: Male
  Weight: 84.44 kg

DRUGS (10)
  1. HUMIRA 40 MG/ 0.8 ML PRE-FILLED SYRINGE [Suspect]
     Indication: RHEUMATOID ARTHRITIS
     Route: 058
     Dates: start: 2003, end: 201209
  2. DOXAZOSIN [Suspect]
     Indication: HYPERTENSION
     Dosage: 8mg daily
     Route: 048
     Dates: end: 201207
  3. NORVASC [Concomitant]
     Indication: HYPERTENSION
     Route: 048
  4. COZAAR [Concomitant]
     Indication: HYPERTENSION
  5. GLUCOTROL [Concomitant]
     Indication: DIABETES MELLITUS
  6. HUMULIN R [Concomitant]
     Indication: DIABETES MELLITUS
  7. HUMULIN N [Concomitant]
     Indication: DIABETES MELLITUS
  8. PREDNISONE [Concomitant]
     Indication: RHEUMATOID ARTHRITIS
     Dosage: Daily
  9. METHOTREXATE [Concomitant]
     Indication: RHEUMATOID ARTHRITIS
  10. DOXASOZIN [Concomitant]
     Indication: HYPERTENSION
     Route: 048
     Dates: end: 201207

REACTIONS (8)
  - Blood glucose increased [Recovered/Resolved]
  - Dermatitis allergic [Recovered/Resolved]
  - Hypertension [Recovered/Resolved]
  - Skin cancer [Recovered/Resolved]
  - Occult blood positive [Unknown]
  - Pruritus [Recovered/Resolved]
  - Neoplasm malignant [Recovered/Resolved]
  - Psoriasis [Recovering/Resolving]
